FAERS Safety Report 4425234-1 (Version None)
Quarter: 2004Q3

REPORT INFORMATION
  Report Type: 
  Country: None (occurrence: None)
  Receive Date: 20040810
  Receipt Date: 20040729
  Transmission Date: 20050211
  Serious: Yes (Other)
  Sender: FDA-Public Use
  Company Number: 2004225968US

PATIENT
  Age: 57 Year
  Sex: Male

DRUGS (1)
  1. DOSTINEX [Suspect]
     Indication: PROLACTINOMA

REACTIONS (3)
  - BRAIN OEDEMA [None]
  - INTRACRANIAL PRESSURE INCREASED [None]
  - MENTAL STATUS CHANGES [None]
